FAERS Safety Report 4616140-8 (Version None)
Quarter: 2005Q1

REPORT INFORMATION
  Report Type: 
  Country: None (occurrence: None)
  Receive Date: 20050321
  Receipt Date: 20050308
  Transmission Date: 20050727
  Serious: Yes (Hospitalization)
  Sender: FDA-Public Use
  Company Number: MK200503-0117-1

PATIENT
  Age: 61 Year
  Sex: Male

DRUGS (2)
  1. ANAFRANIL CAP [Suspect]
     Indication: DEPRESSION
     Dosage: 100-150 MG, QD
     Dates: start: 20000807
  2. TAFIL [Concomitant]

REACTIONS (5)
  - DELIRIUM [None]
  - DISORIENTATION [None]
  - MUSCLE CONTRACTIONS INVOLUNTARY [None]
  - MYOCLONUS [None]
  - RESTLESSNESS [None]
